FAERS Safety Report 9506012 (Version 1)
Quarter: 2013Q1

REPORT INFORMATION
  Report Type: Spontaneous
  Country: US (occurrence: None)
  Receive Date: 20130305
  Receipt Date: 20130305
  Transmission Date: 20140127
  Serious: No
  Sender: FDA-Public Use
  Company Number: 1000039624

PATIENT
  Age: 66 Year
  Sex: Female

DRUGS (4)
  1. DALIRESP [Suspect]
     Indication: CHRONIC OBSTRUCTIVE PULMONARY DISEASE
     Route: 048
     Dates: start: 20121004
  2. ZOLOFT (SERTRALINE HYDROCHLORIDE)(SERTRALINE HYDROCHLORIDE) [Concomitant]
  3. TRAMADOL(TRAMADOL)(TRAMADOL) [Concomitant]
  4. NORCO(VICODIN)(VICODIN) [Concomitant]

REACTIONS (6)
  - Back pain [None]
  - Pain [None]
  - Influenza like illness [None]
  - Decreased appetite [None]
  - Drug ineffective [None]
  - Depressed mood [None]
